FAERS Safety Report 22314596 (Version 1)
Quarter: 2023Q2

REPORT INFORMATION
  Report Type: Spontaneous
  Country: US (occurrence: US)
  Receive Date: 20230512
  Receipt Date: 20230512
  Transmission Date: 20230722
  Serious: No
  Sender: FDA-Public Use
  Company Number: US-VIIV HEALTHCARE LIMITED-US2023AMR065297

PATIENT
  Sex: Male

DRUGS (3)
  1. CABENUVA [Suspect]
     Active Substance: CABOTEGRAVIR\RILPIVIRINE
     Indication: HIV infection
     Dosage: UNK UNK, Q2M, EVERY 2 MONTHS, CABOTEGRAVIR 600 MG/3 MLS, RILPIVIRINE 900 MG/3 ML
     Dates: start: 202202, end: 202210
  2. CABENUVA [Suspect]
     Active Substance: CABOTEGRAVIR\RILPIVIRINE
  3. CABENUVA [Suspect]
     Active Substance: CABOTEGRAVIR\RILPIVIRINE

REACTIONS (3)
  - Injection site pain [Not Recovered/Not Resolved]
  - Phantom limb syndrome [Not Recovered/Not Resolved]
  - Myalgia [Not Recovered/Not Resolved]
